FAERS Safety Report 5380391-8 (Version None)
Quarter: 2007Q3

REPORT INFORMATION
  Report Type: 
  Country: None (occurrence: None)
  Receive Date: 20070706
  Receipt Date: 20070523
  Transmission Date: 20080115
  Serious: No
  Sender: FDA-Public Use
  Company Number: A0652703A

PATIENT
  Sex: Female

DRUGS (1)
  1. TYKERB [Suspect]
     Indication: DRUG USE FOR UNKNOWN INDICATION
     Dosage: 750MG PER DAY
     Route: 065
     Dates: start: 20070509, end: 20070501

REACTIONS (4)
  - DIARRHOEA [None]
  - EPISTAXIS [None]
  - NAUSEA [None]
  - VOMITING [None]
